FAERS Safety Report 6112196-4 (Version None)
Quarter: 2009Q1

REPORT INFORMATION
  Report Type: 
  Country: None (occurrence: None)
  Receive Date: 20090310
  Receipt Date: 20090224
  Transmission Date: 20090719
  Serious: Yes (Hospitalization, Other)
  Sender: FDA-Public Use
  Company Number: 2009S1003230

PATIENT
  Age: 39 Year
  Sex: Female

DRUGS (5)
  1. LEVETIRACETAM [Suspect]
     Indication: EPILEPSY
     Dosage: 500 MG; TWICE A DAY; ORAL; 500 MG; TWICE A DAY; ORAL
     Route: 048
     Dates: start: 20090105, end: 20090118
  2. LEVETIRACETAM [Suspect]
     Indication: EPILEPSY
     Dosage: 500 MG; TWICE A DAY; ORAL; 500 MG; TWICE A DAY; ORAL
     Route: 048
     Dates: start: 20090122
  3. TEGRETOL [Suspect]
     Dosage: 200MG 4 X/ DAY
     Dates: end: 20020101
  4. TRILEPTAL (CON.) [Concomitant]
  5. ............... [Concomitant]

REACTIONS (6)
  - ANTICONVULSANT DRUG LEVEL DECREASED [None]
  - DRUG INTERACTION [None]
  - DYSARTHRIA [None]
  - GRAND MAL CONVULSION [None]
  - HYPERSOMNIA [None]
  - URINARY INCONTINENCE [None]
